FAERS Safety Report 20388581 (Version 1)
Quarter: 2022Q1

REPORT INFORMATION
  Report Type: Spontaneous
  Country: US (occurrence: US)
  Receive Date: 20220128
  Receipt Date: 20220128
  Transmission Date: 20220423
  Serious: No
  Sender: FDA-Public Use
  Company Number: US-VIIV HEALTHCARE LIMITED-US2022AMR009062

PATIENT
  Sex: Female

DRUGS (2)
  1. RILPIVIRINE [Suspect]
     Active Substance: RILPIVIRINE
     Indication: Product used for unknown indication
     Dosage: UNK, Z(MONTHLY)
     Route: 030
     Dates: start: 20220106
  2. CABOTEGRAVIR [Suspect]
     Active Substance: CABOTEGRAVIR
     Indication: Product used for unknown indication
     Dosage: UNK, Z(MONTHLY)
     Route: 030
     Dates: start: 20220106

REACTIONS (2)
  - Injection site pain [Unknown]
  - Injection site oedema [Recovering/Resolving]

NARRATIVE: CASE EVENT DATE: 20220101
